FAERS Safety Report 5436602-3 (Version None)
Quarter: 2007Q3

REPORT INFORMATION
  Report Type: 
  Country: None (occurrence: None)
  Receive Date: 20070831
  Receipt Date: 20070822
  Transmission Date: 20080115
  Serious: No
  Sender: FDA-Public Use
  Company Number: A0672173A

PATIENT

DRUGS (2)
  1. ALLI [Suspect]
     Dates: start: 20070620
  2. VITAMIN [Concomitant]

REACTIONS (7)
  - CONSTIPATION [None]
  - DEPRESSED MOOD [None]
  - DEPRESSION [None]
  - FLATULENCE [None]
  - GASTROINTESTINAL DISORDER [None]
  - PSYCHIATRIC SYMPTOM [None]
  - WEIGHT INCREASED [None]
